FAERS Safety Report 5452944-X (Version None)
Quarter: 2007Q3

REPORT INFORMATION
  Report Type: 
  Country: None (occurrence: None)
  Receive Date: 20070914
  Receipt Date: 20070904
  Transmission Date: 20080115
  Serious: Yes (Hospitalization)
  Sender: FDA-Public Use
  Company Number: FR-ROCHE-515591

PATIENT
  Age: 71 Year
  Sex: Female

DRUGS (8)
  1. RIVOTRIL [Suspect]
     Indication: PAIN
     Dosage: DOSE: 3 DOSES DAILY.
     Route: 048
     Dates: start: 20070713, end: 20070717
  2. INEXIUM [Suspect]
     Indication: DRUG USE FOR UNKNOWN INDICATION
     Dosage: DOSE: 1 DOSE DAILY.
     Route: 048
     Dates: start: 20070711, end: 20070718
  3. PROFENID [Suspect]
     Indication: DRUG USE FOR UNKNOWN INDICATION
     Dosage: DOSE: 1 DOSE THREE TIMES A DAY.
     Route: 048
     Dates: start: 20070711, end: 20070716
  4. TOPALGIC [Suspect]
     Indication: PAIN
     Dosage: DOSE: 1 DOSE TWICE DAILY.
     Route: 048
     Dates: start: 20070712, end: 20070717
  5. LYRICA [Suspect]
     Indication: ALLODYNIA
     Route: 048
     Dates: start: 20070712, end: 20070716
  6. NEURONTIN [Concomitant]
     Indication: ALLODYNIA
     Dosage: STRENGTH: 600 MG. DOSAGE REGIMEN: ONE DOSE THIRD PER DAY
     Route: 048
     Dates: start: 20070711, end: 20070716
  7. NEURONTIN [Concomitant]
     Dosage: STRENGTH: 800 MG. DOSAGE REGIMEN: ONE DOSE THIRD PER DAY
     Route: 048
     Dates: start: 20070716, end: 20070717
  8. PARACETAMOL [Concomitant]
     Route: 048

REACTIONS (2)
  - ENCEPHALOPATHY [None]
  - HYPERAMMONAEMIA [None]
